FAERS Safety Report 8108128-X (Version None)
Quarter: 2012Q1

REPORT INFORMATION
  Report Type: 
  Country: None (occurrence: None)
  Receive Date: 20120202
  Receipt Date: 20120127
  Transmission Date: 20120608
  Serious: Yes (Congenital Anomaly)
  Sender: FDA-Public Use
  Company Number: GB-PFIZER INC-2011058612

PATIENT
  Sex: Female

DRUGS (5)
  1. GABAPENTIN [Suspect]
     Dosage: 1200 MG, 3X/DAY
     Route: 064
     Dates: end: 20110314
  2. DULOXETINE [Concomitant]
     Dosage: 60 MG, 1X/DAY
     Route: 064
     Dates: end: 20110314
  3. TOPIRAMATE [Concomitant]
     Dosage: 25 MG, 1X/DAY (AT NIGHT)
     Route: 064
     Dates: start: 20110217, end: 20110222
  4. METOCLOPRAMIDE [Concomitant]
     Dosage: 10 MG, 3X/DAY (AS NEEDED)
     Route: 064
     Dates: end: 20110314
  5. MORPHINE [Concomitant]
     Dosage: 40 MG, 2X/DAY
     Route: 064
     Dates: start: 20111014

REACTIONS (2)
  - MATERNAL EXPOSURE TIMING UNSPECIFIED [None]
  - HAEMANGIOMA OF SKIN [None]
